FAERS Safety Report 22375116 (Version 1)
Quarter: 2023Q2

REPORT INFORMATION
  Report Type: Report from Study
  Country: GR (occurrence: GR)
  Receive Date: 20230527
  Receipt Date: 20230527
  Transmission Date: 20230722
  Serious: Yes (Other)
  Sender: FDA-Public Use
  Company Number: GR-002147023-NVSC2023GR107020

PATIENT
  Age: 62 Year
  Sex: Female

DRUGS (10)
  1. HYRIMOZ [Suspect]
     Active Substance: ADALIMUMAB-ADAZ
     Indication: Psoriatic arthropathy
     Dosage: 40 MG (EVERY 15 DAYS)
     Route: 065
     Dates: start: 20221101
  2. LEVOCETIRIZINE [Concomitant]
     Active Substance: LEVOCETIRIZINE
     Indication: Hypersensitivity
     Dosage: UNK
     Route: 065
  3. IBUTIN [Concomitant]
     Indication: Irritable bowel syndrome
     Dosage: 1 DOSAGE FORM, QD
     Route: 065
  4. IBUTIN [Concomitant]
     Dosage: 2 DOSAGE FORM, QD
     Route: 065
  5. CERADAN [Concomitant]
     Indication: Product used for unknown indication
     Dosage: UNK
     Route: 065
  6. FERRUM [Concomitant]
     Indication: Nutritional supplementation
     Dosage: 1 DOSAGE FORM, TIW
     Route: 065
  7. MAGNESIUM [Concomitant]
     Active Substance: MAGNESIUM
     Indication: Nutritional supplementation
     Dosage: 1 DOSAGE FORM, QD
     Route: 065
  8. METHOTREXATE SODIUM [Concomitant]
     Active Substance: METHOTREXATE SODIUM
     Indication: Psoriatic arthropathy
     Dosage: 1 DOSAGE FORM, QW (1 INJ, WEEKLY)
     Route: 065
  9. PREDNISOLONE [Concomitant]
     Active Substance: PREDNISOLONE
     Indication: Product used for unknown indication
     Dosage: 10 MG, QD
     Route: 065
  10. SEROPRAM [Concomitant]
     Indication: Sedative therapy
     Dosage: 2 DOSAGE FORM, QD
     Route: 065

REACTIONS (8)
  - Melanocytic naevus [Not Recovered/Not Resolved]
  - Swelling face [Not Recovered/Not Resolved]
  - Peripheral swelling [Not Recovered/Not Resolved]
  - Hypoaesthesia oral [Not Recovered/Not Resolved]
  - Weight increased [Not Recovered/Not Resolved]
  - Dyspepsia [Not Recovered/Not Resolved]
  - Rash [Not Recovered/Not Resolved]
  - Insomnia [Not Recovered/Not Resolved]

NARRATIVE: CASE EVENT DATE: 20230201
